FAERS Safety Report 7079409-6 (Version None)
Quarter: 2010Q4

REPORT INFORMATION
  Report Type: 
  Country: None (occurrence: None)
  Receive Date: 20101102
  Receipt Date: 20101027
  Transmission Date: 20110411
  Serious: Yes (Disabling)
  Sender: FDA-Public Use
  Company Number: US-MERCK-1010USA03391

PATIENT
  Age: 52 Year
  Sex: Female

DRUGS (3)
  1. FOSAMAX [Suspect]
     Indication: OSTEOPOROSIS
     Route: 048
     Dates: start: 20100201
  2. AMITRIPTYLINE HYDROCHLORIDE [Concomitant]
     Route: 065
  3. RESTASIS [Concomitant]
     Route: 065

REACTIONS (1)
  - MADAROSIS [None]
